FAERS Safety Report 23513639 (Version 2)
Quarter: 2024Q1

REPORT INFORMATION
  Report Type: Spontaneous
  Country: JP (occurrence: JP)
  Receive Date: 20240212
  Receipt Date: 20240221
  Transmission Date: 20240410
  Serious: Yes (Death, Other)
  Sender: FDA-Public Use
  Company Number: JP-AstraZeneca-CH-00562286A

PATIENT
  Sex: Male
  Weight: 59 kg

DRUGS (1)
  1. SOLIRIS [Suspect]
     Active Substance: ECULIZUMAB
     Indication: Paroxysmal nocturnal haemoglobinuria
     Dosage: 900 MILLIGRAM EVERY THREE WEEKS
     Route: 042

REACTIONS (2)
  - Death [Fatal]
  - Refusal of treatment by patient [Unknown]

NARRATIVE: CASE EVENT DATE: 20240208
